FAERS Safety Report 8336472-X (Version None)
Quarter: 2012Q2

REPORT INFORMATION
  Report Type: 
  Country: None (occurrence: None)
  Receive Date: 20120504
  Receipt Date: 20120430
  Transmission Date: 20120825
  Serious: Yes (Other)
  Sender: FDA-Public Use
  Company Number: PHHY2012CH028077

PATIENT
  Sex: Female

DRUGS (5)
  1. MARCUMAR [Concomitant]
     Indication: ANTICOAGULANT THERAPY
     Route: 048
  2. TRACLEER [Concomitant]
     Indication: PULMONARY ARTERIAL HYPERTENSION
     Dosage: 250 MG, UNK
     Route: 048
     Dates: start: 20070301
  3. SPIRONOLACTONE [Concomitant]
     Dosage: 100 MG, UNK
     Route: 048
     Dates: start: 20070301
  4. TORSEMIDE [Concomitant]
     Dosage: 40 MG, UNK
     Dates: start: 20070301
  5. GLEEVEC [Suspect]
     Indication: PULMONARY HYPERTENSION
     Dosage: 400 MG, UNK
     Dates: start: 20090301

REACTIONS (3)
  - SUBDURAL HAEMATOMA [None]
  - HEADACHE [None]
  - NECK PAIN [None]
